FAERS Safety Report 5810498-X (Version None)
Quarter: 2008Q3

REPORT INFORMATION
  Report Type: 
  Country: None (occurrence: None)
  Receive Date: 20080715
  Receipt Date: 20080703
  Transmission Date: 20090109
  Serious: Yes (Other)
  Sender: FDA-Public Use
  Company Number: US-PFIZER INC-2008055806

PATIENT
  Sex: Female
  Weight: 49.9 kg

DRUGS (7)
  1. DIFLUCAN [Suspect]
     Indication: SYSTEMIC CANDIDA
     Dosage: DAILY DOSE:100MG
  2. DIFLUCAN [Suspect]
     Dosage: DAILY DOSE:200MG
  3. FLUCONAZOLE [Suspect]
     Indication: SYSTEMIC CANDIDA
  4. ANTIBIOTICS [Suspect]
  5. OXYCONTIN [Concomitant]
  6. PERCOCET [Concomitant]
  7. XANAX [Concomitant]

REACTIONS (9)
  - BLOOD PRESSURE INCREASED [None]
  - DISABILITY [None]
  - INFECTION [None]
  - INFLUENZA [None]
  - MALAISE [None]
  - PYREXIA [None]
  - SYSTEMIC LUPUS ERYTHEMATOSUS [None]
  - THYROID DISORDER [None]
  - WEIGHT INCREASED [None]
